FAERS Safety Report 14009566 (Version 1)
Quarter: 2017Q3

REPORT INFORMATION
  Report Type: Spontaneous
  Country: US (occurrence: US)
  Receive Date: 20170925
  Receipt Date: 20170925
  Transmission Date: 20171128
  Serious: Yes (Hospitalization)
  Sender: FDA-Public Use
  Company Number: US-BAUSCH-BL-2017-027922

PATIENT
  Sex: Male

DRUGS (1)
  1. XIFAXAN [Suspect]
     Active Substance: RIFAXIMIN
     Indication: PRODUCT USED FOR UNKNOWN INDICATION
     Dosage: PROBABLY IN APR/2017 OR MAY/2017
     Route: 065
     Dates: start: 2017

REACTIONS (4)
  - Full blood count decreased [Unknown]
  - Asthenia [Unknown]
  - Hypotension [Unknown]
  - Confusional state [Unknown]

NARRATIVE: CASE EVENT DATE: 20170917
